FAERS Safety Report 19242113 (Version 1)
Quarter: 2021Q2

REPORT INFORMATION
  Report Type: Spontaneous
  Country: US (occurrence: US)
  Receive Date: 20210510
  Receipt Date: 20210510
  Transmission Date: 20210717
  Serious: No
  Sender: FDA-Public Use
  Company Number: US-NOVOPROD-785644

PATIENT
  Age: 12 Year
  Sex: Male

DRUGS (1)
  1. NORDITROPIN [Suspect]
     Active Substance: SOMATROPIN
     Indication: GROWTH FAILURE
     Dosage: 0.2 MG
     Route: 058
     Dates: start: 20210128, end: 2021

REACTIONS (9)
  - Rhinorrhoea [Recovered/Resolved]
  - Intentional product misuse [Recovered/Resolved]
  - Pollakiuria [Recovered/Resolved]
  - Bladder pain [Recovered/Resolved]
  - Headache [Recovered/Resolved]
  - Periorbital swelling [Recovered/Resolved]
  - Diarrhoea [Recovered/Resolved]
  - Mood altered [Recovered/Resolved]
  - Peripheral swelling [Recovered/Resolved]

NARRATIVE: CASE EVENT DATE: 20210128
